FAERS Safety Report 20453362 (Version 2)
Quarter: 2022Q1

REPORT INFORMATION
  Report Type: Other
  Country: US (occurrence: None)
  Receive Date: 20220210
  Receipt Date: 20220313
  Transmission Date: 20220423
  Serious: Yes (Hospitalization, Other)
  Sender: FDA-Public Use
  Company Number: US-ROCHE-3016590

PATIENT
  Age: 43 Year
  Sex: Female
  Weight: 95.340 kg

DRUGS (2)
  1. RITUXAN [Suspect]
     Active Substance: RITUXIMAB
     Indication: Relapsing-remitting multiple sclerosis
     Dosage: FORMULATION: INFUSION; ONGOING: NO; ONE TIME DOSE; INTRAVENOUS (NOT OTHERWISE SPECIFIED)
     Route: 041
     Dates: start: 201802, end: 201802
  2. OCREVUS [Suspect]
     Active Substance: OCRELIZUMAB
     Indication: Relapsing-remitting multiple sclerosis
     Dosage: NORMAL DOSE; FORMULATION: INFUSION; ONGOING: UNKNOWN; INTERVAL: 6 MONTHS; INFUSION DATES: 15-MAY-201
     Route: 042
     Dates: start: 201803

REACTIONS (5)
  - Multiple sclerosis relapse [Not Recovered/Not Resolved]
  - Multiple sclerosis [Not Recovered/Not Resolved]
  - Bronchitis [Recovered/Resolved]
  - COVID-19 [Not Recovered/Not Resolved]
  - Off label use [Unknown]

NARRATIVE: CASE EVENT DATE: 20180201
